FAERS Safety Report 6570147-2 (Version None)
Quarter: 2010Q1

REPORT INFORMATION
  Report Type: 
  Country: None (occurrence: None)
  Receive Date: 20100202
  Receipt Date: 20100202
  Transmission Date: 20100710
  Serious: No
  Sender: FDA-Public Use
  Company Number: None

PATIENT
  Age: 56 Year
  Sex: Female
  Weight: 70.3075 kg

DRUGS (1)
  1. NITROFURANTOIN [Suspect]
     Indication: CYSTITIS
     Dosage: 2 PER DAY
     Dates: start: 20100128, end: 20100128

REACTIONS (5)
  - CARDIAC DISORDER [None]
  - DIZZINESS [None]
  - HYPOAESTHESIA [None]
  - SPEECH DISORDER [None]
  - VERTIGO [None]
